FAERS Safety Report 22068087 (Version 1)
Quarter: 2023Q1

REPORT INFORMATION
  Report Type: Spontaneous
  Country: FR (occurrence: FR)
  Receive Date: 20230307
  Receipt Date: 20230307
  Transmission Date: 20230418
  Serious: Yes (Hospitalization)
  Sender: FDA-Public Use
  Company Number: None

PATIENT
  Age: 20 Year
  Sex: Female
  Weight: 60 kg

DRUGS (7)
  1. DIAZEPAM [Suspect]
     Active Substance: DIAZEPAM
     Indication: Mania
     Route: 065
     Dates: start: 20221214, end: 20230104
  2. CYAMEMAZINE [Suspect]
     Active Substance: CYAMEMAZINE
     Indication: Mania
     Route: 065
     Dates: start: 20221226, end: 20230103
  3. RISPERIDONE [Suspect]
     Active Substance: RISPERIDONE
     Indication: Mania
     Route: 065
     Dates: start: 20221229, end: 20230103
  4. ARIPIPRAZOLE [Suspect]
     Active Substance: ARIPIPRAZOLE
     Indication: Mania
     Route: 065
     Dates: start: 20221215, end: 20230103
  5. TROPATEPINE HYDROCHLORIDE [Suspect]
     Active Substance: TROPATEPINE HYDROCHLORIDE
     Indication: Anticholinergic syndrome
     Route: 065
     Dates: start: 20221223, end: 20230103
  6. DEPAKOTE [Suspect]
     Active Substance: DIVALPROEX SODIUM
     Indication: Mania
     Route: 065
     Dates: start: 20230102, end: 20230104
  7. LOXAPINE [Suspect]
     Active Substance: LOXAPINE
     Indication: Mania
     Route: 065
     Dates: start: 20221215, end: 20221229

REACTIONS (3)
  - Neuroleptic malignant syndrome [Recovered/Resolved]
  - Hyperleukocytosis [Recovered/Resolved]
  - Transaminases increased [Recovering/Resolving]

NARRATIVE: CASE EVENT DATE: 20230103
